FAERS Safety Report 8501388-2 (Version None)
Quarter: 2012Q3

REPORT INFORMATION
  Report Type: 
  Country: None (occurrence: None)
  Receive Date: 20120710
  Receipt Date: 20120709
  Transmission Date: 20120928
  Serious: Yes (Hospitalization)
  Sender: FDA-Public Use
  Company Number: TH-GILEAD-2012-0057709

PATIENT
  Sex: Male

DRUGS (4)
  1. ALLOPURINOL [Concomitant]
     Indication: GOUT
     Dosage: 200 MG, UNK
     Route: 048
     Dates: start: 20101201
  2. MARAVIROC [Concomitant]
     Indication: HIV INFECTION
  3. RALTEGRAVIR [Concomitant]
     Indication: HIV INFECTION
  4. EFAVIRENZ/EMTRICITABINE/TENOFOVIR DISOPROXIL FUMARATE [Suspect]
     Indication: HIV INFECTION
     Dosage: 1 DF, QD
     Route: 048
     Dates: end: 20120707

REACTIONS (1)
  - HAEMATEMESIS [None]
